FAERS Safety Report 9707097 (Version 1)
Quarter: 2013Q4

REPORT INFORMATION
  Report Type: Spontaneous
  Country: US (occurrence: US)
  Receive Date: 20131125
  Receipt Date: 20131125
  Transmission Date: 20140711
  Serious: Yes (Other)
  Sender: FDA-Public Use
  Company Number: US-JNJFOC-20131110958

PATIENT
  Age: 53 Year
  Sex: Male
  Weight: 133.36 kg

DRUGS (1)
  1. STELARA [Suspect]
     Indication: PSORIASIS
     Dosage: 3 MONTHS AGO, HAD 2 DOSES
     Route: 058
     Dates: start: 2013

REACTIONS (1)
  - Osteonecrosis [Not Recovered/Not Resolved]
